FAERS Safety Report 12489471 (Version 2)
Quarter: 2016Q3

REPORT INFORMATION
  Report Type: Spontaneous
  Country: US (occurrence: US)
  Receive Date: 20160622
  Receipt Date: 20160719
  Transmission Date: 20161109
  Serious: Yes (Other)
  Sender: FDA-Public Use
  Company Number: US-TEVA-668828USA

PATIENT
  Age: 52 Year
  Sex: Female

DRUGS (2)
  1. ZECUITY [Suspect]
     Active Substance: SUMATRIPTAN SUCCINATE
     Indication: MIGRAINE
     Route: 062
     Dates: start: 20160604, end: 20160604
  2. ZECUITY [Suspect]
     Active Substance: SUMATRIPTAN SUCCINATE
     Route: 062
     Dates: start: 20160612, end: 20160612

REACTIONS (10)
  - Application site pain [Unknown]
  - Application site discolouration [Recovered/Resolved]
  - Application site dryness [Not Recovered/Not Resolved]
  - Application site pruritus [Unknown]
  - Product leakage [Unknown]
  - Application site dryness [Unknown]
  - Application site burn [Unknown]
  - Product physical issue [Unknown]
  - Application site discomfort [Unknown]
  - Application site erythema [Recovered/Resolved]

NARRATIVE: CASE EVENT DATE: 20160604
